FAERS Safety Report 16764352 (Version 1)
Quarter: 2019Q3

REPORT INFORMATION
  Report Type: Spontaneous
  Country: CA (occurrence: CA)
  Receive Date: 20190902
  Receipt Date: 20190902
  Transmission Date: 20191005
  Serious: Yes (Other)
  Sender: FDA-Public Use
  Company Number: CA-GLAXOSMITHKLINE-A0159553A

PATIENT
  Age: 18 Year
  Sex: Male

DRUGS (4)
  1. EPIVAL [Concomitant]
     Active Substance: DIVALPROEX SODIUM
  2. RELENZA [Suspect]
     Active Substance: ZANAMIVIR
     Indication: PRODUCT USED FOR UNKNOWN INDICATION
     Route: 055
  3. L-THYROXINE [Concomitant]
     Active Substance: LEVOTHYROXINE
  4. LITHIUM. [Concomitant]
     Active Substance: LITHIUM

REACTIONS (1)
  - Angioedema [Unknown]
